FAERS Safety Report 6288215-1 (Version None)
Quarter: 2009Q3

REPORT INFORMATION
  Report Type: 
  Country: None (occurrence: None)
  Receive Date: 20090729
  Receipt Date: 20090727
  Transmission Date: 20100115
  Serious: Yes (Other)
  Sender: FDA-Public Use
  Company Number: US-BAYER-200924391NA

PATIENT
  Age: 25 Year
  Sex: Female

DRUGS (1)
  1. MIRENA [Suspect]
     Indication: DRUG USE FOR UNKNOWN INDICATION
     Route: 015
     Dates: start: 20060101, end: 20090506

REACTIONS (4)
  - CHORIOAMNIONITIS [None]
  - FUNISITIS [None]
  - MECONIUM STAIN [None]
  - PREGNANCY WITH CONTRACEPTIVE DEVICE [None]
